FAERS Safety Report 13956485 (Version 1)
Quarter: 2017Q3

REPORT INFORMATION
  Report Type: Other
  Country: GB (occurrence: GB)
  Receive Date: 20170911
  Receipt Date: 20170911
  Transmission Date: 20171128
  Serious: Yes (Hospitalization)
  Sender: FDA-Public Use
  Company Number: GB-RARE DISEASE THERAPEUTICS, INC.-2025852

PATIENT
  Age: 76 Year
  Sex: Male

DRUGS (5)
  1. HYDROCORTISONE. [Suspect]
     Active Substance: HYDROCORTISONE
     Route: 042
  2. MESALAZINE [Suspect]
     Active Substance: MESALAMINE
     Route: 054
  3. PREDNISOLONE. [Suspect]
     Active Substance: PREDNISOLONE
     Route: 048
  4. PURIXAN [Suspect]
     Active Substance: MERCAPTOPURINE
     Indication: CROHN^S DISEASE
     Route: 048
  5. MESALAZINE [Suspect]
     Active Substance: MESALAMINE
     Route: 048

REACTIONS (3)
  - Pneumocystis jirovecii pneumonia [Unknown]
  - Cytomegalovirus colitis [Unknown]
  - Off label use [None]
